FAERS Safety Report 4778977-4 (Version None)
Quarter: 2005Q3

REPORT INFORMATION
  Report Type: 
  Country: None (occurrence: None)
  Receive Date: 20050914
  Receipt Date: 20050517
  Transmission Date: 20060218
  Serious: Yes (Other)
  Sender: FDA-Public Use
  Company Number: 405195

PATIENT
  Age: 68 Year
  Sex: Female
  Weight: 43.1 kg

DRUGS (9)
  1. BONIVA [Suspect]
     Indication: OSTEOPOROSIS PROPHYLAXIS
     Dosage: 150MG 1 PER MONTH ORAL
     Route: 048
     Dates: start: 20050515
  2. SYNTHROID [Concomitant]
  3. PRAVACHOL [Concomitant]
  4. SPIRIVA [Concomitant]
  5. SEREVENT [Concomitant]
  6. ALBUTEROL [Concomitant]
  7. CALTRATE (CALTRATE CARBONATE) [Concomitant]
  8. SLOW-FE (FERROUS SULFATE) [Concomitant]
  9. VERELAN (VERAPAMIL HYDROCHLORIDE) [Concomitant]

REACTIONS (7)
  - BLOOD PRESSURE INCREASED [None]
  - DIZZINESS [None]
  - HEADACHE [None]
  - NAUSEA [None]
  - PAIN IN EXTREMITY [None]
  - SOMNOLENCE [None]
  - STOMACH DISCOMFORT [None]
